FAERS Safety Report 20604316 (Version 1)
Quarter: 2022Q1

REPORT INFORMATION
  Report Type: Spontaneous
  Country: US (occurrence: US)
  Receive Date: 20220316
  Receipt Date: 20220316
  Transmission Date: 20220423
  Serious: No
  Sender: FDA-Public Use
  Company Number: US-SA-SAC20220311000860

PATIENT
  Age: 27 Year
  Sex: Female

DRUGS (2)
  1. DUPIXENT [Suspect]
     Active Substance: DUPILUMAB
     Indication: Dermatitis atopic
     Dosage: 300 MG, QOW
     Route: 058
     Dates: start: 20220128
  2. ATOMOXETINE [Concomitant]
     Active Substance: ATOMOXETINE

REACTIONS (5)
  - Alopecia [Unknown]
  - Dermatitis atopic [Unknown]
  - Rash [Unknown]
  - Erythema [Unknown]
  - Rash pruritic [Unknown]
